FAERS Safety Report 21032081 (Version 2)
Quarter: 2022Q3

REPORT INFORMATION
  Report Type: Spontaneous
  Country: US (occurrence: US)
  Receive Date: 20220701
  Receipt Date: 20220722
  Transmission Date: 20221026
  Serious: No
  Sender: FDA-Public Use
  Company Number: US-UNITED THERAPEUTICS-UNT-2022-012669

PATIENT
  Age: 51 Year
  Sex: Female

DRUGS (3)
  1. REMODULIN [Suspect]
     Active Substance: TREPROSTINIL
     Indication: Pulmonary arterial hypertension
     Dosage: UNK, CONTINUING
     Route: 041
     Dates: start: 20211025
  2. REMODULIN [Suspect]
     Active Substance: TREPROSTINIL
     Dosage: 0.109 ?G/KG, CONTINUING [PUMP RATE 42ML/24HR]
     Route: 041
     Dates: start: 20220606
  3. REMODULIN [Suspect]
     Active Substance: TREPROSTINIL
     Dosage: 0.104 ?G/KG, CONTINUING
     Route: 041
     Dates: start: 2022

REACTIONS (4)
  - Fatigue [Unknown]
  - Nausea [Unknown]
  - Palpitations [Unknown]
  - Dyspnoea [Unknown]

NARRATIVE: CASE EVENT DATE: 20220601
